FAERS Safety Report 18992522 (Version 1)
Quarter: 2021Q1

REPORT INFORMATION
  Report Type: Spontaneous
  Country: US (occurrence: US)
  Receive Date: 20210310
  Receipt Date: 20210310
  Transmission Date: 20210420
  Serious: Yes (Hospitalization)
  Sender: FDA-Public Use
  Company Number: None

PATIENT
  Age: 60 Year
  Sex: Male
  Weight: 72.1 kg

DRUGS (10)
  1. ASPIRIN 81MG [Concomitant]
     Active Substance: ASPIRIN
  2. NIFEDIPINE. [Suspect]
     Active Substance: NIFEDIPINE
     Indication: HYPERTENSION
     Route: 048
     Dates: start: 20190801, end: 20210308
  3. FERROUS SULFATE 325MG [Concomitant]
     Active Substance: FERROUS SULFATE
  4. PREDISONE 5MG [Concomitant]
  5. GLIPIZIDE 10MG [Concomitant]
     Active Substance: GLIPIZIDE
  6. FAMOTIDINE 20MG [Concomitant]
     Active Substance: FAMOTIDINE
  7. TACROLIMUS. [Suspect]
     Active Substance: TACROLIMUS
     Indication: RENAL TRANSPLANT
     Route: 048
     Dates: start: 20190401, end: 20210308
  8. MYFORTIC [Concomitant]
     Active Substance: MYCOPHENOLATE SODIUM
  9. TACROLIMUS. [Suspect]
     Active Substance: TACROLIMUS
     Indication: IMMUNOSUPPRESSANT DRUG THERAPY
     Route: 048
     Dates: start: 20190401, end: 20210308
  10. METOPROLOL TARTRATE 25MG [Concomitant]
     Active Substance: METOPROLOL TARTRATE

REACTIONS (1)
  - Hallucination [None]

NARRATIVE: CASE EVENT DATE: 20210310
